FAERS Safety Report 8791352 (Version 1)
Quarter: 2012Q4

REPORT INFORMATION
  Report Type: Spontaneous
  Country: US (occurrence: None)
  Receive Date: 20120914
  Receipt Date: 20120914
  Transmission Date: 20130627
  Serious: Yes (Life-Threatening, Other)
  Sender: FDA-Public Use
  Company Number: None

PATIENT
  Age: 74 Year
  Sex: Female
  Weight: 81.65 kg

DRUGS (1)
  1. DETROL LA [Suspect]
     Indication: BLADDER INFECTION
     Route: 048
     Dates: start: 20120821

REACTIONS (10)
  - Incorrect dose administered [None]
  - Syncope [None]
  - Fall [None]
  - Loss of consciousness [None]
  - Contusion [None]
  - Bone contusion [None]
  - Concussion [None]
  - Suspected counterfeit product [None]
  - Product quality issue [None]
  - Product tampering [None]
